FAERS Safety Report 16290281 (Version 1)
Quarter: 2019Q2

REPORT INFORMATION
  Report Type: Spontaneous
  Country: US (occurrence: US)
  Receive Date: 20190508
  Receipt Date: 20190508
  Transmission Date: 20190711
  Serious: Yes (Hospitalization)
  Sender: FDA-Public Use
  Company Number: None

PATIENT
  Age: 62 Year
  Sex: Male

DRUGS (15)
  1. ALBUTEROL / AMLODIPINE [Concomitant]
  2. BACTRIM / CELLCEPT [Concomitant]
  3. MAG OXIDE / METOPROLOL [Concomitant]
  4. CITALOPRAM / CLONIDINE [Concomitant]
  5. PEPCID / PRESNISONE [Concomitant]
  6. COUMIDAN / CYCLOSPORINE [Concomitant]
  7. SEROQUEL / URSODIOL [Concomitant]
  8. WARFARIN / WELLBUTRIN [Concomitant]
  9. LISINOPRIL / LOPRESSOR [Concomitant]
  10. NEPHROCAPS / NORVASC [Concomitant]
  11. PROTONIX / SANDIMMUNE [Concomitant]
  12. CYCLOSPORINE. [Suspect]
     Active Substance: CYCLOSPORINE
     Indication: LIVER TRANSPLANT
     Route: 048
     Dates: start: 20090403
  13. OXYCODONE / PANTOPRAZOLE [Concomitant]
  14. MYCOPHENOLATE [Suspect]
     Active Substance: MYCOPHENOLIC ACID
     Indication: LIVER TRANSPLANT
     Route: 048
     Dates: start: 20100625
  15. MULTIVITAMIN  / MYCOPHENOLATE [Concomitant]

REACTIONS (1)
  - Infection [None]

NARRATIVE: CASE EVENT DATE: 20190411
